FAERS Safety Report 25793441 (Version 1)
Quarter: 2025Q3

REPORT INFORMATION
  Report Type: Spontaneous
  Country: US (occurrence: US)
  Receive Date: 20250911
  Receipt Date: 20250911
  Transmission Date: 20251021
  Serious: No
  Sender: MERCK SHARP & DOHME LLC
  Company Number: US-009507513-2320186

PATIENT
  Age: 21 Year
  Sex: Male

DRUGS (3)
  1. TEMOZOLOMIDE [Suspect]
     Active Substance: TEMOZOLOMIDE
     Indication: Astrocytoma, low grade
     Route: 048
  2. DABRAFENIB [Concomitant]
     Active Substance: DABRAFENIB
     Indication: Astrocytoma, low grade
  3. TRAMETINIB [Concomitant]
     Active Substance: TRAMETINIB
     Indication: Astrocytoma, low grade

REACTIONS (1)
  - Product use in unapproved indication [Unknown]
